FAERS Safety Report 12750562 (Version 1)
Quarter: 2016Q3

REPORT INFORMATION
  Report Type: Spontaneous
  Country: US (occurrence: US)
  Receive Date: 20160916
  Receipt Date: 20160916
  Transmission Date: 20161109
  Serious: No
  Sender: FDA-Public Use
  Company Number: US-JNJFOC-20160102183

PATIENT
  Sex: Female

DRUGS (1)
  1. AXERT [Suspect]
     Active Substance: ALMOTRIPTAN MALATE
     Indication: MULTIPLE ALLERGIES
     Route: 048

REACTIONS (3)
  - Off label use [Unknown]
  - Frustration tolerance decreased [Unknown]
  - Product use issue [Unknown]
